FAERS Safety Report 15584516 (Version 2)
Quarter: 2018Q4

REPORT INFORMATION
  Report Type: Report from Study
  Country: US (occurrence: US)
  Receive Date: 20181105
  Receipt Date: 20181112
  Transmission Date: 20190205
  Serious: No
  Sender: FDA-Public Use
  Company Number: US-SA-2018SA302410

PATIENT
  Age: 61 Year
  Sex: Female

DRUGS (2)
  1. ALIROCUMAB [Suspect]
     Active Substance: ALIROCUMAB
     Dosage: UNK UNK, QOW
     Route: 058
     Dates: start: 20181023
  2. REPATHA [Concomitant]
     Active Substance: EVOLOCUMAB

REACTIONS (8)
  - Chills [Unknown]
  - Pharyngeal oedema [Unknown]
  - Unevaluable event [Unknown]
  - Throat irritation [Unknown]
  - Cough [Unknown]
  - Feeling abnormal [Unknown]
  - Influenza [Unknown]
  - Dyspnoea [Unknown]

NARRATIVE: CASE EVENT DATE: 201810
